FAERS Safety Report 4365398-1 (Version None)
Quarter: 2004Q2

REPORT INFORMATION
  Report Type: 
  Country: None (occurrence: None)
  Receive Date: 20040525
  Receipt Date: 20040525
  Transmission Date: 20050107
  Serious: Yes (Life-Threatening, Hospitalization)
  Sender: FDA-Public Use
  Company Number: None

PATIENT
  Age: 57 Year
  Sex: Male
  Weight: 62.1 kg

DRUGS (9)
  1. LISINOPRIL [Suspect]
     Indication: CARDIAC FAILURE CONGESTIVE
     Dosage: 10 MG PO DAILY
     Route: 048
  2. LISINOPRIL [Suspect]
     Indication: HYPERTENSION
     Dosage: 10 MG PO DAILY
     Route: 048
  3. ZAROXOLYN [Suspect]
     Indication: CARDIAC FAILURE CONGESTIVE
     Dosage: 2.5 MG
  4. ZAROXOLYN [Suspect]
     Indication: HYPERTENSION
     Dosage: 2.5 MG
  5. COREG [Suspect]
     Dosage: 6.25 BID
  6. DIGOXIN [Concomitant]
  7. ALBUTEROL [Concomitant]
  8. ALPRAZOLAM [Concomitant]
  9. ZITHROMAX [Concomitant]

REACTIONS (3)
  - DEHYDRATION [None]
  - HYPOTENSION [None]
  - PNEUMONIA [None]
